FAERS Safety Report 8045889-2 (Version None)
Quarter: 2012Q1

REPORT INFORMATION
  Report Type: 
  Country: None (occurrence: None)
  Receive Date: 20120113
  Receipt Date: 20120105
  Transmission Date: 20120608
  Serious: Yes (Hospitalization, Other)
  Sender: FDA-Public Use
  Company Number: US-GLAXOSMITHKLINE-A0944658A

PATIENT
  Age: 63 Year
  Sex: Female
  Weight: 101.8 kg

DRUGS (10)
  1. TOPROL-XL [Concomitant]
  2. AVANDIA [Suspect]
     Indication: DIABETES MELLITUS
     Dosage: 8MG PER DAY
     Route: 048
     Dates: start: 20030101, end: 20080812
  3. INSULIN [Concomitant]
  4. PROTONIX [Concomitant]
  5. AMLODIPINE [Concomitant]
  6. GLIPIZIDE [Concomitant]
  7. SIMVASTATIN [Concomitant]
  8. DIOVAN [Concomitant]
  9. PREMARIN [Concomitant]
  10. GABAPENTIN [Concomitant]

REACTIONS (2)
  - CARDIAC FAILURE CONGESTIVE [None]
  - MYOCARDIAL INFARCTION [None]
